FAERS Safety Report 8025132-0 (Version None)
Quarter: 2011Q4

REPORT INFORMATION
  Report Type: 
  Country: None (occurrence: None)
  Receive Date: 20111130
  Receipt Date: 20110615
  Transmission Date: 20120403
  Serious: Yes (Life-Threatening, Other)
  Sender: FDA-Public Use
  Company Number: 951379

PATIENT
  Age: 45 Year
  Sex: Female
  Weight: 54.55 kg

DRUGS (3)
  1. (OTHER HYPNOTICS AND SEDATIVES) [Concomitant]
  2. BUPIVACAINE HCL [Suspect]
     Dosage: 20 CC, INTRAVENOUS (NOT OTHERWISE SPECIFIED)
     Route: 042
     Dates: start: 20100819, end: 20100819
  3. CARBOCAINE [Suspect]
     Dosage: 20 CC, INTRAVENOUS (NOT OTHERWISE SPECIFIED)
     Route: 042
     Dates: start: 20100819, end: 20100819

REACTIONS (1)
  - INCORRECT ROUTE OF DRUG ADMINISTRATION [None]
